FAERS Safety Report 25955257 (Version 1)
Quarter: 2025Q4

REPORT INFORMATION
  Report Type: Report from Study
  Country: KR (occurrence: KR)
  Receive Date: 20251024
  Receipt Date: 20251024
  Transmission Date: 20260118
  Serious: Yes (Hospitalization)
  Sender: IPSEN BIOPHARMACEUTICALS, INC.
  Company Number: KR-SERVIER-S23001857

PATIENT
  Age: 68 Year
  Sex: Female
  Weight: 63.7 kg

DRUGS (12)
  1. ONIVYDE [Suspect]
     Active Substance: IRINOTECAN HYDROCHLORIDE
     Indication: Pancreatic carcinoma
     Dosage: 116 MG, EVERY 2 WEEKS
     Dates: start: 20230201, end: 20230213
  2. FLUOROURACIL [Suspect]
     Active Substance: FLUOROURACIL
     Indication: Pancreatic carcinoma
     Dosage: 3178 MG, EVERY 2 WEEKS
     Dates: start: 20230213
  3. FLUOROURACIL [Suspect]
     Active Substance: FLUOROURACIL
     Dosage: DOSE REDUCED BY 80%
  4. CITOPCIN [Concomitant]
     Dosage: 500 MG, BID
     Dates: start: 20230213
  5. LOPERAMIDE HYDROCHLORIDE [Concomitant]
     Active Substance: LOPERAMIDE HYDROCHLORIDE
     Dosage: 6 MG, TID
     Dates: start: 20230213
  6. FOTAGEL [Concomitant]
     Dosage: 60 ML, TID
     Dates: start: 20230220
  7. NALOXONE HYDROCHLORIDE\OXYCODONE HYDROCHLORIDE [Concomitant]
     Active Substance: NALOXONE HYDROCHLORIDE\OXYCODONE HYDROCHLORIDE
     Dosage: 1 DF, QD
     Dates: start: 20220920
  8. NORZYME [Concomitant]
     Dosage: 1 DF, TID
     Dates: start: 20220930, end: 20230323
  9. MOSAPRIDE CITRATE [Concomitant]
     Active Substance: MOSAPRIDE CITRATE
     Dosage: 1 DF, TID
     Dates: start: 20220930, end: 20230305
  10. FENTANYL [Concomitant]
     Active Substance: FENTANYL
     Dosage: 1 PATCH EVERY 3 DAYS
     Dates: start: 20230213, end: 20230322
  11. FENTANYL [Concomitant]
     Active Substance: FENTANYL
     Dosage: 1 DF, PRN
     Dates: start: 20230213, end: 20230323
  12. AXIDEXA [Concomitant]
     Dosage: 150 MG, BID
     Dates: start: 20220930, end: 20230310

REACTIONS (1)
  - Enterocolitis [Recovered/Resolved]

NARRATIVE: CASE EVENT DATE: 20230220
